FAERS Safety Report 12929860 (Version 1)
Quarter: 2016Q4

REPORT INFORMATION
  Report Type: Spontaneous
  Country: US (occurrence: US)
  Receive Date: 20161110
  Receipt Date: 20161110
  Transmission Date: 20170207
  Serious: No
  Sender: FDA-Public Use
  Company Number: None

PATIENT
  Age: 70 Year
  Sex: Female

DRUGS (2)
  1. HARVONI [Suspect]
     Active Substance: LEDIPASVIR\SOFOSBUVIR
     Indication: CHRONIC HEPATITIS C
  2. HARVONI [Suspect]
     Active Substance: LEDIPASVIR\SOFOSBUVIR
     Indication: GASTROOESOPHAGEAL REFLUX DISEASE

REACTIONS (8)
  - Fatigue [None]
  - Dyspnoea [None]
  - Depressed mood [None]
  - Asthenia [None]
  - Dizziness [None]
  - Diplopia [None]
  - Pain in extremity [None]
  - Impaired work ability [None]

NARRATIVE: CASE EVENT DATE: 20161110
